FAERS Safety Report 12533779 (Version 1)
Quarter: 2016Q3

REPORT INFORMATION
  Report Type: Spontaneous
  Country: US (occurrence: US)
  Receive Date: 20160706
  Receipt Date: 20160706
  Transmission Date: 20161109
  Serious: No
  Sender: FDA-Public Use
  Company Number: US-PURDUE-USA-2016-0128577

PATIENT
  Sex: Female
  Weight: 65 kg

DRUGS (2)
  1. BUTRANS [Suspect]
     Active Substance: BUPRENORPHINE
     Indication: LUMBAR RADICULOPATHY
  2. BUTRANS [Suspect]
     Active Substance: BUPRENORPHINE
     Indication: ARTHROPATHY
     Dosage: 20 MCG/HR, WEEKLY
     Route: 062
     Dates: start: 20150729, end: 20160310

REACTIONS (1)
  - Application site rash [Unknown]
